FAERS Safety Report 19430327 (Version 1)
Quarter: 2021Q2

REPORT INFORMATION
  Report Type: Spontaneous
  Country: US (occurrence: US)
  Receive Date: 20210617
  Receipt Date: 20210617
  Transmission Date: 20210717
  Serious: No
  Sender: FDA-Public Use
  Company Number: US-ACCORD-201359

PATIENT
  Sex: Female

DRUGS (1)
  1. CAPECITABINE. [Suspect]
     Active Substance: CAPECITABINE
     Indication: BILE DUCT CANCER
     Dosage: 14 DAYS ON 7 DAYS OFF AND 3 TABLETS TWICE A DAY
     Route: 048
     Dates: start: 20200126

REACTIONS (2)
  - Off label use [Unknown]
  - Product dose omission in error [Unknown]
